FAERS Safety Report 21674984 (Version 1)
Quarter: 2022Q4

REPORT INFORMATION
  Report Type: Spontaneous
  Country: US (occurrence: None)
  Receive Date: 20221201
  Receipt Date: 20221201
  Transmission Date: 20230112
  Serious: Yes (Hospitalization, Disabling)
  Sender: FDA-Public Use
  Company Number: None

PATIENT
  Age: 56 Year
  Sex: Female
  Weight: 81.65 kg

DRUGS (4)
  1. GADOLINIUM [Suspect]
     Active Substance: GADOLINIUM
  2. VITAMIN C [Concomitant]
     Active Substance: ASCORBIC ACID
  3. MAGNESIUM [Concomitant]
     Active Substance: MAGNESIUM
  4. DEVICE [Concomitant]
     Active Substance: DEVICE

REACTIONS (5)
  - Gait inability [None]
  - Walking aid user [None]
  - Contrast media deposition [None]
  - Contrast media deposition [None]
  - Heavy metal increased [None]

NARRATIVE: CASE EVENT DATE: 20210228
